FAERS Safety Report 10958025 (Version 1)
Quarter: 2015Q1

REPORT INFORMATION
  Report Type: Spontaneous
  Country: GB (occurrence: GB)
  Receive Date: 20150326
  Receipt Date: 20150326
  Transmission Date: 20150721
  Serious: Yes (Life-Threatening, Hospitalization, Other)
  Sender: FDA-Public Use
  Company Number: GB-ASTRAZENECA-2015SE27760

PATIENT
  Age: 72 Year
  Sex: Male

DRUGS (15)
  1. BRIMONIDINE [Concomitant]
     Active Substance: BRIMONIDINE\BRIMONIDINE TARTRATE
  2. CALCICHEW D3 [Concomitant]
     Active Substance: CALCIUM\CHOLECALCIFEROL
  3. LENALIDOMIDE [Suspect]
     Active Substance: LENALIDOMIDE
     Indication: PLASMA CELL MYELOMA
     Route: 048
     Dates: start: 20150206, end: 20150227
  4. LATANOPROST. [Concomitant]
     Active Substance: LATANOPROST
  5. PERINDOPRIL [Concomitant]
     Active Substance: PERINDOPRIL
  6. FOLIC ACID. [Concomitant]
     Active Substance: FOLIC ACID
  7. BISOPROLOL [Concomitant]
     Active Substance: BISOPROLOL
  8. ASPIRIN. [Concomitant]
     Active Substance: ASPIRIN
  9. BEZAFIBRATE [Concomitant]
     Active Substance: BEZAFIBRATE
  10. LOPERAMIDE [Concomitant]
     Active Substance: LOPERAMIDE
  11. SIMVASTATIN. [Concomitant]
     Active Substance: SIMVASTATIN
  12. ALLOPURINOL. [Concomitant]
     Active Substance: ALLOPURINOL
  13. COSOPT [Concomitant]
     Active Substance: DORZOLAMIDE HYDROCHLORIDE\TIMOLOL MALEATE
  14. QUININE SULPHATE [Concomitant]
     Active Substance: QUININE SULFATE
  15. OMEPRAZOLE. [Suspect]
     Active Substance: OMEPRAZOLE
     Route: 048

REACTIONS (4)
  - Acute kidney injury [Recovering/Resolving]
  - Blood calcium decreased [Recovering/Resolving]
  - Seizure [Unknown]
  - Blood magnesium decreased [Recovering/Resolving]

NARRATIVE: CASE EVENT DATE: 20150311
